FAERS Safety Report 15085187 (Version 1)
Quarter: 2018Q2

REPORT INFORMATION
  Report Type: Spontaneous
  Country: US (occurrence: US)
  Receive Date: 20180628
  Receipt Date: 20180628
  Transmission Date: 20180711
  Serious: Yes (Other)
  Sender: FDA-Public Use
  Company Number: US-GLAXOSMITHKLINE-US2018115066

PATIENT
  Sex: Female

DRUGS (1)
  1. ADVAIR DISKUS [Suspect]
     Active Substance: FLUTICASONE PROPIONATE\SALMETEROL XINAFOATE
     Indication: CHRONIC OBSTRUCTIVE PULMONARY DISEASE
     Dosage: 1 PUFF(S), BID
     Dates: start: 2016

REACTIONS (5)
  - Cataract operation [Unknown]
  - Eye swelling [Unknown]
  - Cataract [Unknown]
  - Eye haemorrhage [Unknown]
  - Retinal disorder [Unknown]

NARRATIVE: CASE EVENT DATE: 2017
